FAERS Safety Report 4973800-7 (Version None)
Quarter: 2006Q2

REPORT INFORMATION
  Report Type: 
  Country: None (occurrence: None)
  Receive Date: 20060414
  Receipt Date: 20060105
  Transmission Date: 20061013
  Serious: Yes (Hospitalization)
  Sender: FDA-Public Use
  Company Number: US-MERCK-0601USA00588

PATIENT
  Age: 54 Year
  Sex: Female
  Weight: 65 kg

DRUGS (12)
  1. VIOXX [Suspect]
     Indication: RHEUMATOID ARTHRITIS
     Route: 048
     Dates: start: 20020108, end: 20021225
  2. LEVOXYL [Concomitant]
     Route: 065
  3. CIPROFLOXACIN [Concomitant]
     Route: 065
  4. PROTONIX [Concomitant]
     Route: 065
  5. COLACE [Concomitant]
     Route: 065
  6. ZANAFLEX [Concomitant]
     Route: 065
  7. PREDNISOLONE ACETATE AND SULFACETAMIDE SODIUM [Concomitant]
     Route: 065
  8. MECLIZINE [Concomitant]
     Route: 065
  9. QUIXIN [Concomitant]
     Route: 065
  10. BACLOFEN [Concomitant]
     Route: 065
  11. AMBIEN [Concomitant]
     Route: 065
  12. ALPRAZOLAM [Concomitant]
     Route: 065

REACTIONS (5)
  - BLOOD CHOLESTEROL INCREASED [None]
  - FLUID RETENTION [None]
  - HYPERTENSION [None]
  - MYOCARDIAL INFARCTION [None]
  - OSTEOARTHRITIS [None]
